FAERS Safety Report 9353286 (Version 1)
Quarter: 2013Q2

REPORT INFORMATION
  Report Type: Spontaneous
  Country: US (occurrence: US)
  Receive Date: 20130618
  Receipt Date: 20130618
  Transmission Date: 20140414
  Serious: No
  Sender: FDA-Public Use
  Company Number: US-PFIZER INC-2013179832

PATIENT
  Age: 53 Year
  Sex: Female

DRUGS (5)
  1. XANAX [Suspect]
     Dosage: 1 MG, UNK
  2. RAMIPRIL [Suspect]
     Dosage: 10 MG, UNK
  3. ZYRTEC [Suspect]
     Dosage: 40 MG, UNK
  4. RANITIDINE [Suspect]
     Dosage: 150 MG, UNK
  5. CELEXA [Suspect]
     Dosage: 40 MG, UNK

REACTIONS (1)
  - Drug hypersensitivity [Unknown]
